FAERS Safety Report 4365664-X (Version None)
Quarter: 2004Q2

REPORT INFORMATION
  Report Type: 
  Country: None (occurrence: None)
  Receive Date: 20040521
  Receipt Date: 20040507
  Transmission Date: 20050107
  Serious: Yes (Death, Hospitalization)
  Sender: FDA-Public Use
  Company Number: 2002-04897

PATIENT
  Age: 41 Year
  Sex: Male
  Weight: 54 kg

DRUGS (5)
  1. VIREAD [Suspect]
     Indication: HIV INFECTION
     Dosage: 300 MG, ONCE A DAY, ORAL
     Route: 048
     Dates: start: 20020517, end: 20020909
  2. DDI (DIDANOSINE) [Suspect]
     Indication: HIV INFECTION
     Dosage: 400 MG, ONCE A DAY, ORAL
     Route: 048
     Dates: start: 20020517, end: 20020909
  3. RIBAVIRIN (RIBAVIRIN) (CAPSULE) [Concomitant]
  4. ALPHA INTERFERON (INTERFERON ALFA) (INJECTION) [Concomitant]
  5. 3TC (LAMIVUDINE) [Concomitant]

REACTIONS (4)
  - LACTIC ACIDOSIS [None]
  - MULTI-ORGAN FAILURE [None]
  - PANCREATITIS ACUTE [None]
  - RENAL FAILURE [None]
